FAERS Safety Report 20531697 (Version 1)
Quarter: 2022Q1

REPORT INFORMATION
  Report Type: Spontaneous
  Country: US (occurrence: US)
  Receive Date: 20220301
  Receipt Date: 20220301
  Transmission Date: 20220423
  Serious: No
  Sender: FDA-Public Use
  Company Number: US-SA-SAC20220223001039

PATIENT
  Age: 30 Year
  Sex: Female

DRUGS (1)
  1. DUPIXENT [Suspect]
     Active Substance: DUPILUMAB
     Indication: Dermatitis allergic
     Dosage: 300MG/ML
     Route: 058
     Dates: start: 20211211

REACTIONS (3)
  - Product use in unapproved indication [Unknown]
  - Product administration error [Unknown]
  - Device use error [Unknown]

NARRATIVE: CASE EVENT DATE: 20211211
